FAERS Safety Report 5446198-8 (Version None)
Quarter: 2007Q3

REPORT INFORMATION
  Report Type: 
  Country: None (occurrence: None)
  Receive Date: 20070731
  Receipt Date: 20070209
  Transmission Date: 20080115
  Serious: Yes (Hospitalization)
  Sender: FDA-Public Use
  Company Number: US-2007-003687

PATIENT
  Age: 74 Year
  Sex: Female

DRUGS (1)
  1. MAGNEVIST [Suspect]
     Indication: NUCLEAR MAGNETIC RESONANCE IMAGING
     Dosage: 15 ML, 1 DOSE, INTRAVENOUS
     Route: 042
     Dates: start: 20070130, end: 20070130

REACTIONS (6)
  - DYSPNOEA [None]
  - EYE SWELLING [None]
  - LACRIMATION INCREASED [None]
  - PRURITUS [None]
  - RASH MACULAR [None]
  - SNEEZING [None]
